FAERS Safety Report 4553845-1 (Version None)
Quarter: 2005Q1

REPORT INFORMATION
  Report Type: 
  Country: None (occurrence: None)
  Receive Date: 20050110
  Receipt Date: 20050110
  Transmission Date: 20050727
  Serious: Yes (Disabling)
  Sender: FDA-Public Use
  Company Number: None

PATIENT
  Age: 34 Year
  Sex: Female
  Weight: 81.6475 kg

DRUGS (1)
  1. ACTIVATED CHARCOAL   520 MAG   NATURE'S WAY [Suspect]
     Indication: ABDOMINAL PAIN
     Dosage: 2 CAPSULS   AS NEEDED   ORAL
     Route: 048
     Dates: start: 20041229, end: 20050107

REACTIONS (2)
  - NAUSEA [None]
  - PHARMACEUTICAL PRODUCT COMPLAINT [None]
